FAERS Safety Report 7860942-1 (Version None)
Quarter: 2011Q4

REPORT INFORMATION
  Report Type: 
  Country: None (occurrence: None)
  Receive Date: 20111027
  Receipt Date: 20111018
  Transmission Date: 20120403
  Serious: Yes (Hospitalization)
  Sender: FDA-Public Use
  Company Number: US-JNJFOC-20110911543

PATIENT
  Sex: Male
  Weight: 76.2 kg

DRUGS (4)
  1. STELARA [Suspect]
     Indication: PSORIASIS
     Route: 058
     Dates: start: 20110406
  2. STELARA [Suspect]
     Route: 058
     Dates: start: 20110105
  3. STELARA [Suspect]
     Route: 058
     Dates: start: 20101208
  4. STELARA [Suspect]
     Route: 058
     Dates: start: 20110706

REACTIONS (1)
  - LUNG NEOPLASM MALIGNANT [None]
